FAERS Safety Report 4986630-7 (Version None)
Quarter: 2006Q2

REPORT INFORMATION
  Report Type: 
  Country: None (occurrence: None)
  Receive Date: 20060428
  Receipt Date: 20060419
  Transmission Date: 20061013
  Serious: Yes (Other)
  Sender: FDA-Public Use
  Company Number: PHBS2006SE05670

PATIENT
  Sex: Female

DRUGS (15)
  1. ZOMETA [Suspect]
     Indication: MULTIPLE MYELOMA
     Dosage: 4 MG EVERY 28 DAYS
     Route: 065
     Dates: start: 20030101
  2. OXYCONTIN [Concomitant]
     Route: 065
  3. TROMBYL [Concomitant]
     Route: 065
  4. ATARAX [Concomitant]
     Route: 065
  5. CILAXORAL [Concomitant]
     Route: 065
  6. MOVICOL [Concomitant]
     Route: 065
  7. BETAPRED [Concomitant]
     Route: 065
  8. LOSEC [Concomitant]
     Route: 065
  9. FUROSEMIDE [Concomitant]
     Route: 065
  10. KAJOS [Concomitant]
     Route: 065
  11. SPIRONOLACTONE [Concomitant]
     Route: 065
  12. INSULATARD NPH HUMAN [Concomitant]
     Route: 065
  13. ZOPICLON [Concomitant]
     Route: 065
  14. NOVORAPID [Concomitant]
     Route: 065
  15. OXYNORM [Concomitant]
     Route: 065

REACTIONS (1)
  - OSTEONECROSIS [None]
